FAERS Safety Report 5152126-5 (Version None)
Quarter: 2006Q4

REPORT INFORMATION
  Report Type: 
  Country: None (occurrence: None)
  Receive Date: 20061114
  Receipt Date: 20061114
  Transmission Date: 20070319
  Serious: No
  Sender: FDA-Public Use
  Company Number: None

PATIENT
  Age: 67 Year
  Sex: Male
  Weight: 82 kg

DRUGS (3)
  1. ROSUVASTATIN 20 MG ASTRAZENECA [Suspect]
     Indication: ARTERIOSCLEROSIS
     Dosage: 40 MG 1 PO
     Route: 048
     Dates: start: 20061102, end: 20061111
  2. ROSUVASTATIN 20 MG ASTRAZENECA [Suspect]
     Indication: ARTERIOSCLEROSIS CORONARY ARTERY
     Dosage: 40 MG 1 PO
     Route: 048
     Dates: start: 20061102, end: 20061111
  3. CRESTOR [Concomitant]

REACTIONS (2)
  - ERYTHEMA [None]
  - RHABDOMYOLYSIS [None]
